FAERS Safety Report 8470966-1 (Version None)
Quarter: 2012Q2

REPORT INFORMATION
  Report Type: 
  Country: None (occurrence: None)
  Receive Date: 20120323
  Receipt Date: 20111103
  Transmission Date: 20120825
  Serious: Yes (Other)
  Sender: FDA-Public Use
  Company Number: 163-21880-11082812

PATIENT
  Age: 56 Year
  Weight: 60 kg

DRUGS (5)
  1. REVLIMID [Suspect]
     Dosage: 25 MG, 1 IN 1 D, 15 MG, QD FOR 14 DAYS, 15 MG, 1 IN 1 D, 10 MG, 1 IN 1 D, 5 MG, 1 IN 1 D
     Dates: start: 20110601, end: 20110714
  2. REVLIMID [Suspect]
     Dosage: 25 MG, 1 IN 1 D, 15 MG, QD FOR 14 DAYS, 15 MG, 1 IN 1 D, 10 MG, 1 IN 1 D, 5 MG, 1 IN 1 D
     Dates: start: 20100301
  3. REVLIMID [Suspect]
     Dosage: 25 MG, 1 IN 1 D, 15 MG, QD FOR 14 DAYS, 15 MG, 1 IN 1 D, 10 MG, 1 IN 1 D, 5 MG, 1 IN 1 D
     Dates: start: 20100401
  4. REVLIMID [Suspect]
     Dosage: 25 MG, 1 IN 1 D, 15 MG, QD FOR 14 DAYS, 15 MG, 1 IN 1 D, 10 MG, 1 IN 1 D, 5 MG, 1 IN 1 D
     Dates: start: 20110101
  5. REVLIMID [Suspect]
     Dosage: 25 MG, 1 IN 1 D, 15 MG, QD FOR 14 DAYS, 15 MG, 1 IN 1 D, 10 MG, 1 IN 1 D, 5 MG, 1 IN 1 D
     Dates: start: 20091214

REACTIONS (2)
  - PLATELET COUNT DECREASED [None]
  - MULTIPLE MYELOMA [None]
